FAERS Safety Report 9307823 (Version 1)
Quarter: 2013Q2

REPORT INFORMATION
  Report Type: Spontaneous
  Country: GR (occurrence: GR)
  Receive Date: 20130524
  Receipt Date: 20130524
  Transmission Date: 20140414
  Serious: Yes (Hospitalization, Other)
  Sender: FDA-Public Use
  Company Number: GR-ROCHE-1227145

PATIENT
  Age: 83 Year
  Sex: Female

DRUGS (3)
  1. TARCEVA [Suspect]
     Indication: LUNG ADENOCARCINOMA
     Route: 065
  2. AVASTIN [Suspect]
     Indication: LUNG ADENOCARCINOMA
     Route: 065
  3. ALIMTA [Suspect]
     Indication: LUNG ADENOCARCINOMA
     Route: 065

REACTIONS (4)
  - Intestinal perforation [Not Recovered/Not Resolved]
  - Lower limb fracture [Unknown]
  - Fall [Unknown]
  - Condition aggravated [Unknown]
